FAERS Safety Report 13269098 (Version 1)
Quarter: 2017Q1

REPORT INFORMATION
  Report Type: Spontaneous
  Country: FR (occurrence: FR)
  Receive Date: 20170224
  Receipt Date: 20170224
  Transmission Date: 20170428
  Serious: Yes (Hospitalization)
  Sender: FDA-Public Use
  Company Number: FR-PFIZER INC-2017077768

PATIENT
  Age: 87 Year
  Sex: Male

DRUGS (16)
  1. LOXAPAC [Suspect]
     Active Substance: LOXAPINE SUCCINATE
     Dosage: 5 DF IN THE MORNING AND 10 DF IN THE EVENING
     Route: 048
     Dates: start: 20170131, end: 20170202
  2. NORSET [Concomitant]
     Active Substance: MIRTAZAPINE
     Dosage: 30 MG, 1X/DAY
     Dates: start: 20170102, end: 20170118
  3. EFFERALGAN [Concomitant]
     Active Substance: ACETAMINOPHEN
     Dosage: UNK
     Dates: start: 20161227
  4. TERCIAN [Concomitant]
     Active Substance: CYAMEMAZINE
     Dosage: INCREASED DOSE
     Dates: start: 20170107, end: 20170118
  5. ALDACTAZINE [Suspect]
     Active Substance: ALTHIAZIDE\SPIRONOLACTONE
     Dosage: 1 DF, 1X/DAY, MORNING
     Route: 048
     Dates: start: 20161227
  6. TERCIAN [Concomitant]
     Active Substance: CYAMEMAZINE
     Dosage: 5 DF IN THE MORNING, 5 DF AT NOON, AND 10 DF AT BEDTIME
     Dates: start: 20161227
  7. TERCIAN [Concomitant]
     Active Substance: CYAMEMAZINE
     Dosage: 10 DF, 3X/DAY
     Dates: start: 20170102
  8. TRANXENE T-TAB [Concomitant]
     Active Substance: CLORAZEPATE DIPOTASSIUM
     Dosage: 5 MG, 1 TABLET AT 8:00 AM, 1 AT NOON AND 1 TABLET AT 6:00 PM
     Dates: start: 20161227
  9. TIAPRIDAL [Concomitant]
     Active Substance: TIAPRIDE HYDROCHLORIDE
     Dosage: 1 DF, AS NEEDED
     Route: 030
     Dates: start: 20170118
  10. LYRICA [Suspect]
     Active Substance: PREGABALIN
     Indication: BACK PAIN
     Dosage: 50 MG, 3X/DAY
     Route: 048
     Dates: start: 20170123, end: 20170202
  11. TRANSIPEG [Concomitant]
     Active Substance: POLYETHYLENE GLYCOL 3350
     Dosage: 2 SACHET-DOSE AS NEEDED
     Dates: start: 20161227
  12. TIAPRIDAL [Concomitant]
     Active Substance: TIAPRIDE HYDROCHLORIDE
     Dosage: 1 DF, AS NEEDED
     Route: 030
     Dates: start: 20170108
  13. RISPERDAL [Concomitant]
     Active Substance: RISPERIDONE
     Dosage: 1 MG, 1X/DAY
     Dates: start: 20170102, end: 20170118
  14. LOXAPAC [Suspect]
     Active Substance: LOXAPINE SUCCINATE
     Indication: AGITATION
     Dosage: UNK
     Route: 048
     Dates: start: 20170118
  15. LOXAPAC [Suspect]
     Active Substance: LOXAPINE SUCCINATE
     Dosage: 4 DROPS IN THE MORNING, 4 DROPS AT NOON AND 9 DROPS IN THE EVENING
     Route: 048
     Dates: start: 20170130
  16. TRANXENE T-TAB [Concomitant]
     Active Substance: CLORAZEPATE DIPOTASSIUM
     Dosage: 5 MG, 1 TABLET IN THE MORNING
     Dates: start: 20170102

REACTIONS (2)
  - Agranulocytosis [Recovered/Resolved]
  - Pyrexia [Recovered/Resolved]

NARRATIVE: CASE EVENT DATE: 20170201
